FAERS Safety Report 5725868-8 (Version None)
Quarter: 2008Q2

REPORT INFORMATION
  Report Type: 
  Country: None (occurrence: None)
  Receive Date: 20080430
  Receipt Date: 20080422
  Transmission Date: 20081010
  Serious: Yes (Other)
  Sender: FDA-Public Use
  Company Number: CHPA2008US07077

PATIENT
  Age: 71 Year
  Sex: Female

DRUGS (3)
  1. PERDIEM OVERNIGHT RELIEF PILLS (NCH)(SENNA GLYCOSIDES) (CA SALTS OF PU [Suspect]
     Indication: LAXATIVE SUPPORTIVE CARE
  2. DRUG THERAPY NOS (DRUG THERAPY NOS) [Concomitant]
  3. ANTIHYPERTENSIVES (NO INGREDIENTS/SUBSTANCES) [Concomitant]

REACTIONS (3)
  - BREAST CANCER FEMALE [None]
  - HYPERTENSION [None]
  - INTENTIONAL DRUG MISUSE [None]
